FAERS Safety Report 23028310 (Version 1)
Quarter: 2023Q4

REPORT INFORMATION
  Report Type: Spontaneous
  Country: US (occurrence: US)
  Receive Date: 20231004
  Receipt Date: 20231004
  Transmission Date: 20240110
  Serious: No
  Sender: FDA-Public Use
  Company Number: US-BAYER-2023A134135

PATIENT
  Age: 33 Year
  Sex: Female

DRUGS (1)
  1. MIRENA [Suspect]
     Active Substance: LEVONORGESTREL
     Indication: Endometrial neoplasm
     Dosage: 20?G/DAY
     Route: 015
     Dates: start: 202308, end: 202308

REACTIONS (4)
  - Uterine cervix stenosis [None]
  - Complication of device insertion [None]
  - Off label use [None]
  - Product use in unapproved indication [None]
